FAERS Safety Report 18939181 (Version 1)
Quarter: 2021Q1

REPORT INFORMATION
  Report Type: Spontaneous
  Country: US (occurrence: US)
  Receive Date: 20210224
  Receipt Date: 20210224
  Transmission Date: 20210420
  Serious: Yes (Death)
  Sender: FDA-Public Use
  Company Number: None

PATIENT
  Age: 49 Year
  Sex: Male
  Weight: 149 kg

DRUGS (2)
  1. NO DRUG NAME [Concomitant]
  2. MIRCERA [Suspect]
     Active Substance: METHOXY POLYETHYLENE GLYCOL-EPOETIN BETA
     Indication: ANAEMIA
     Route: 042
     Dates: start: 20210129, end: 20210129

REACTIONS (4)
  - Eye movement disorder [None]
  - Dyspnoea [None]
  - Dialysis [None]
  - Vomiting [None]

NARRATIVE: CASE EVENT DATE: 20210129
